FAERS Safety Report 7718681-3 (Version None)
Quarter: 2011Q3

REPORT INFORMATION
  Report Type: 
  Country: None (occurrence: None)
  Receive Date: 20110830
  Receipt Date: 20110816
  Transmission Date: 20111222
  Serious: No
  Sender: FDA-Public Use
  Company Number: US-B.I. PHARMACEUTICALS,INC./RIDGEFIELD-2011-BP-20103BP

PATIENT
  Sex: Female

DRUGS (6)
  1. ZOLPIDEM [Concomitant]
     Indication: INSOMNIA
  2. NORTRIPTYLINE HCL [Concomitant]
     Indication: TRANSIENT ISCHAEMIC ATTACK
  3. DIGOXIN [Concomitant]
     Indication: CARDIAC DISORDER
  4. PRADAXA [Suspect]
     Indication: TRANSIENT ISCHAEMIC ATTACK
     Dosage: 300 MG
     Route: 048
     Dates: start: 20101001
  5. METOPROLOL TARTRATE [Concomitant]
     Indication: CARDIAC DISORDER
  6. LEXAPRO [Concomitant]
     Indication: DEPRESSION

REACTIONS (2)
  - DRY SKIN [None]
  - RASH [None]
